FAERS Safety Report 5310033-9 (Version None)
Quarter: 2007Q2

REPORT INFORMATION
  Report Type: 
  Country: None (occurrence: None)
  Receive Date: 20070427
  Receipt Date: 20070424
  Transmission Date: 20071010
  Serious: Yes (Other)
  Sender: FDA-Public Use
  Company Number: US-GLAXOSMITHKLINE-A0648776A

PATIENT
  Sex: Female

DRUGS (1)
  1. PAXIL [Suspect]
     Indication: DRUG USE FOR UNKNOWN INDICATION
     Route: 048

REACTIONS (21)
  - ABNORMAL DREAMS [None]
  - AGITATION [None]
  - ALTERED VISUAL DEPTH PERCEPTION [None]
  - ANGER [None]
  - ANXIETY [None]
  - CRYING [None]
  - DIARRHOEA [None]
  - DISABILITY [None]
  - DISORIENTATION [None]
  - DRUG DEPENDENCE [None]
  - DYSPEPSIA [None]
  - ILL-DEFINED DISORDER [None]
  - INFLUENZA LIKE ILLNESS [None]
  - INSOMNIA [None]
  - IRRITABILITY [None]
  - MANIA [None]
  - NAUSEA [None]
  - PARAESTHESIA [None]
  - SNEEZING [None]
  - TINNITUS [None]
  - WEIGHT INCREASED [None]
